FAERS Safety Report 8361649-7 (Version None)
Quarter: 2012Q2

REPORT INFORMATION
  Report Type: 
  Country: None (occurrence: None)
  Receive Date: 20120515
  Receipt Date: 20120430
  Transmission Date: 20120825
  Serious: Yes (Other)
  Sender: FDA-Public Use
  Company Number: TN-WATSON-2012-07806

PATIENT
  Age: 38 Year
  Sex: Male

DRUGS (2)
  1. TACROLIMUS [Suspect]
     Indication: RENAL TRANSPLANT
     Dosage: 10 MG, DAILY
     Route: 065
     Dates: start: 20080301
  2. THEOPHYLLINE [Interacting]
     Indication: POLYCYTHAEMIA
     Dosage: 300 MG, DAILY
     Route: 065
     Dates: start: 20090601

REACTIONS (3)
  - DRUG LEVEL INCREASED [None]
  - RENAL IMPAIRMENT [None]
  - DRUG INTERACTION [None]
